FAERS Safety Report 7768058-X (Version None)
Quarter: 2011Q3

REPORT INFORMATION
  Report Type: 
  Country: None (occurrence: None)
  Receive Date: 20110922
  Receipt Date: 20110915
  Transmission Date: 20111222
  Serious: Yes (Other)
  Sender: FDA-Public Use
  Company Number: CA-PFIZER INC-2011219527

PATIENT
  Sex: Female

DRUGS (5)
  1. XALATAN [Suspect]
     Indication: GLAUCOMA
     Dosage: 1 GTT, 1X/DAY
     Route: 047
  2. SYNTHROID [Concomitant]
     Indication: THYROID DISORDER
     Dosage: 0.5 MG, 1X/DAY
  3. PAROXETINE [Concomitant]
     Indication: STRESS
     Dosage: 10 UNK, AS NEEDED
  4. AZARGA [Concomitant]
     Indication: GLAUCOMA
     Dosage: 1 GTT, 1X/DAY
  5. ATENOLOL [Concomitant]
     Dosage: 50 MG, 1X/DAY

REACTIONS (1)
  - EYE LASER SURGERY [None]
